FAERS Safety Report 24845840 (Version 1)
Quarter: 2025Q1

REPORT INFORMATION
  Report Type: Spontaneous
  Country: US (occurrence: US)
  Receive Date: 20250115
  Receipt Date: 20250115
  Transmission Date: 20250408
  Serious: Yes (Hospitalization)
  Sender: FRESENIUS MEDICAL CARE
  Company Number: US-FMCRTG-FMC-2412-001635

PATIENT
  Age: 39 Year
  Sex: Male
  Weight: 107 kg

DRUGS (13)
  1. DELFLEX WITH DEXTROSE 1.5% LOW MAGNESIUM LOW CALCIUM [Suspect]
     Active Substance: CALCIUM CHLORIDE\DEXTROSE\MAGNESIUM CHLORIDE\SODIUM CHLORIDE\SODIUM LACTATE
     Indication: End stage renal disease
     Route: 033
  2. DELFLEX WITH DEXTROSE 2.5% LOW MAGNESIUM LOW CALCIUM [Suspect]
     Active Substance: CALCIUM CHLORIDE\DEXTROSE\MAGNESIUM CHLORIDE\SODIUM CHLORIDE\SODIUM LACTATE
     Indication: End stage renal disease
     Route: 033
  3. DELFLEX WITH DEXTROSE 4.25% LOW MAGNESIUM LOW CALCIUM [Suspect]
     Active Substance: CALCIUM CHLORIDE\DEXTROSE\MAGNESIUM CHLORIDE\SODIUM CHLORIDE\SODIUM LACTATE
     Indication: End stage renal disease
     Route: 033
  4. CALCITRIOL [Concomitant]
     Active Substance: CALCITRIOL
  5. COLACE [Concomitant]
     Active Substance: DOCUSATE SODIUM
  6. FUROSEMIDE [Concomitant]
     Active Substance: FUROSEMIDE
  7. GENTAMICIN [Concomitant]
     Active Substance: GENTAMICIN
  8. LABETALOL [Concomitant]
     Active Substance: LABETALOL
  9. LINZESS [Concomitant]
     Active Substance: LINACLOTIDE
  10. MIRALAX [Concomitant]
     Active Substance: POLYETHYLENE GLYCOL 3350
  11. NEPHRO-VITE [ASCORBIC ACID;BIOTIN;CYANOCOBALAMIN;FOLIC ACID;NICOTINAMI [Concomitant]
  12. RENVELA [Concomitant]
     Active Substance: SEVELAMER CARBONATE
  13. VALSARTAN [Concomitant]
     Active Substance: VALSARTAN

REACTIONS (1)
  - Peritonitis [Unknown]
